FAERS Safety Report 4631261-1 (Version None)
Quarter: 2005Q2

REPORT INFORMATION
  Report Type: 
  Country: None (occurrence: None)
  Receive Date: 20050407
  Receipt Date: 20050407
  Transmission Date: 20051028
  Serious: Yes (Other)
  Sender: FDA-Public Use
  Company Number: None

PATIENT
  Age: 52 Year
  Sex: Male
  Weight: 74.8435 kg

DRUGS (1)
  1. OXYCODONE ER 80 MG - PURDUE PHARMA [Suspect]
     Indication: THROMBOANGIITIS OBLITERANS
     Dosage: 80 MG 4 PO Q12
     Route: 048
     Dates: start: 20050201, end: 20050401

REACTIONS (2)
  - ABDOMINAL DISCOMFORT [None]
  - NAUSEA [None]
